FAERS Safety Report 8332545-6 (Version None)
Quarter: 2012Q2

REPORT INFORMATION
  Report Type: 
  Country: None (occurrence: None)
  Receive Date: 20120503
  Receipt Date: 20120430
  Transmission Date: 20120825
  Serious: No
  Sender: FDA-Public Use
  Company Number: US-PFIZER INC-2012105614

PATIENT
  Sex: Female
  Weight: 59.864 kg

DRUGS (2)
  1. ADVIL MIGRAINE LIQUI-GELS [Suspect]
     Indication: MIGRAINE
     Dosage: UNK, AS NEEDED
     Route: 048
     Dates: start: 20120101
  2. ADVIL MIGRAINE LIQUI-GELS [Suspect]
     Dosage: 200 MG, AS NEEDED
     Route: 048

REACTIONS (3)
  - PRURITUS [None]
  - SKIN DISORDER [None]
  - URTICARIA [None]
